FAERS Safety Report 21337641 (Version 1)
Quarter: 2022Q3

REPORT INFORMATION
  Report Type: Spontaneous
  Country: CA (occurrence: CA)
  Receive Date: 20220915
  Receipt Date: 20220915
  Transmission Date: 20221026
  Serious: Yes (Hospitalization, Other)
  Sender: FDA-Public Use
  Company Number: CA-OTSUKA-2022_044722

PATIENT
  Age: 34 Year
  Sex: Female

DRUGS (1)
  1. ABILIFY MAINTENA [Suspect]
     Active Substance: ARIPIPRAZOLE
     Indication: Product used for unknown indication
     Dosage: 300 MG EVERY 38 DAYS
     Route: 065
     Dates: start: 202011

REACTIONS (4)
  - Cerebrovascular accident [Unknown]
  - Gait inability [Unknown]
  - Underdose [Unknown]
  - Product prescribing error [Unknown]
